FAERS Safety Report 5495526-6 (Version None)
Quarter: 2007Q4

REPORT INFORMATION
  Report Type: 
  Country: None (occurrence: None)
  Receive Date: 20071018
  Receipt Date: 20070109
  Transmission Date: 20080405
  Serious: Yes (Other)
  Sender: FDA-Public Use
  Company Number: 2005107981

PATIENT
  Age: 51 Year
  Sex: Female

DRUGS (4)
  1. NEURONTIN [Suspect]
     Indication: DIABETIC NEUROPATHY
     Dosage: (900 MG)
     Dates: start: 20010101
  2. GLUCOVANCE (GLIBENCLAMIDE, METFORMIN) [Concomitant]
  3. TOPROL-XL [Concomitant]
  4. AVANDIA [Concomitant]

REACTIONS (6)
  - DECREASED INTEREST [None]
  - DISTURBANCE IN ATTENTION [None]
  - DRUG INEFFECTIVE [None]
  - INSOMNIA [None]
  - SUICIDE ATTEMPT [None]
  - UNDERDOSE [None]
